FAERS Safety Report 4922487-8 (Version None)
Quarter: 2006Q1

REPORT INFORMATION
  Report Type: 
  Country: None (occurrence: None)
  Receive Date: 20060224
  Receipt Date: 20060112
  Transmission Date: 20060701
  Serious: Yes (Death, Hospitalization)
  Sender: FDA-Public Use
  Company Number: FR-GILEAD-2006-0009103

PATIENT
  Age: 44 Year
  Sex: Male

DRUGS (8)
  1. EMTRIVA [Suspect]
     Indication: HIV INFECTION
     Route: 048
     Dates: start: 20051201, end: 20060118
  2. EMTRIVA [Suspect]
     Dates: start: 20060101, end: 20060201
  3. VIREAD [Suspect]
     Indication: HIV INFECTION
     Route: 048
     Dates: start: 20051201, end: 20060118
  4. VIREAD [Suspect]
     Dates: start: 20060101, end: 20060201
  5. KALETRA [Concomitant]
     Indication: HIV INFECTION
     Route: 048
     Dates: start: 20051201, end: 20060118
  6. TRIZIVIR [Concomitant]
     Dates: start: 20030101, end: 20051201
  7. INVIRASE [Concomitant]
     Dates: start: 20060101, end: 20060201
  8. NORVIR [Concomitant]
     Dates: start: 20060101, end: 20060201

REACTIONS (31)
  - ANAEMIA [None]
  - ANAEMIA MACROCYTIC [None]
  - APHASIA [None]
  - ASTHENIA [None]
  - BALANCE DISORDER [None]
  - BRONCHITIS [None]
  - CENTRAL PONTINE MYELINOLYSIS [None]
  - CEREBELLAR SYNDROME [None]
  - CHOLESTASIS [None]
  - COUGH [None]
  - CYTOLYTIC HEPATITIS [None]
  - DIPLEGIA [None]
  - DRUG TOXICITY [None]
  - DYSARTHRIA [None]
  - ENTEROCOLITIS [None]
  - FATIGUE [None]
  - GENERAL PHYSICAL HEALTH DETERIORATION [None]
  - HEPATOMEGALY [None]
  - INFECTION [None]
  - INFLAMMATION [None]
  - LEUKOCYTOSIS [None]
  - MALABSORPTION [None]
  - NIGHT SWEATS [None]
  - PERIPHERAL PARALYSIS [None]
  - PYRAMIDAL TRACT SYNDROME [None]
  - PYREXIA [None]
  - SPLENOMEGALY [None]
  - STEATORRHOEA [None]
  - SYSTEMIC INFLAMMATORY RESPONSE SYNDROME [None]
  - TOXOPLASMOSIS [None]
  - WEIGHT DECREASED [None]
